FAERS Safety Report 11813208 (Version 2)
Quarter: 2016Q1

REPORT INFORMATION
  Report Type: Spontaneous
  Country: US (occurrence: None)
  Receive Date: 20151207
  Receipt Date: 20160121
  Transmission Date: 20160525
  Serious: Yes (Other)
  Sender: FDA-Public Use
  Company Number: FR-ALSI-201500303

PATIENT
  Sex: Male

DRUGS (1)
  1. OXYGEN MEDICINAL ALSF 200 BAR, GAZ POUR INHALATION, EN BOUTEILLE OXYGEN [Suspect]
     Active Substance: OXYGEN
     Indication: OXYGEN SUPPLEMENTATION
     Route: 055
     Dates: start: 201511, end: 201511

REACTIONS (4)
  - Underdose [None]
  - Product quality issue [None]
  - Hypoxia [None]
  - Incorrect dose administered by device [None]

NARRATIVE: CASE EVENT DATE: 20151121
